FAERS Safety Report 4300126-7 (Version None)
Quarter: 2004Q1

REPORT INFORMATION
  Report Type: 
  Country: None (occurrence: None)
  Receive Date: 20040218
  Receipt Date: 20040203
  Transmission Date: 20041129
  Serious: Yes (Hospitalization, Other)
  Sender: FDA-Public Use
  Company Number: 2004JP000144

PATIENT
  Sex: Female
  Weight: 2 kg

DRUGS (1)
  1. PROGRAF [Suspect]
     Indication: RENAL TRANSPLANT
     Route: 064

REACTIONS (8)
  - MATERNAL DRUGS AFFECTING FOETUS [None]
  - NEONATAL CARDIAC FAILURE [None]
  - NEONATAL RESPIRATORY DISTRESS SYNDROME [None]
  - PREMATURE BABY [None]
  - PREMATURE RUPTURE OF MEMBRANES [None]
  - PULMONARY HAEMORRHAGE [None]
  - PULMONARY OEDEMA NEONATAL [None]
  - RESPIRATORY DISORDER NEONATAL [None]
